FAERS Safety Report 13265163 (Version 1)
Quarter: 2017Q1

REPORT INFORMATION
  Report Type: Spontaneous
  Country: US (occurrence: US)
  Receive Date: 20170223
  Receipt Date: 20170223
  Transmission Date: 20170428
  Serious: Yes (Other)
  Sender: FDA-Public Use
  Company Number: US-PURDUE-USA-2017-0136594

PATIENT
  Sex: Female

DRUGS (1)
  1. HYSINGLA ER [Suspect]
     Active Substance: HYDROCODONE BITARTRATE
     Indication: PAIN MANAGEMENT
     Dosage: 20 MG, Q24H
     Route: 048
     Dates: start: 20170131, end: 20170203

REACTIONS (2)
  - Choking [Recovered/Resolved]
  - Foreign body [Unknown]

NARRATIVE: CASE EVENT DATE: 20170131
